FAERS Safety Report 10215291 (Version 3)
Quarter: 2014Q2

REPORT INFORMATION
  Report Type: Spontaneous
  Country: FR (occurrence: FR)
  Receive Date: 20140603
  Receipt Date: 20140620
  Transmission Date: 20141212
  Serious: No
  Sender: FDA-Public Use
  Company Number: FR-SA-2014SA063294

PATIENT
  Age: 9 Year
  Sex: Female
  Weight: 40 kg

DRUGS (3)
  1. MYOZYME [Suspect]
     Indication: GLYCOGEN STORAGE DISEASE TYPE II
     Dosage: C214C04 X 6?C3212C02 X 10
     Route: 042
     Dates: start: 20140507
  2. MYOZYME [Suspect]
     Indication: GLYCOGEN STORAGE DISEASE TYPE II
     Dosage: C214C04 X 6?C3212C02 X 10
     Route: 042
     Dates: start: 20140507
  3. PARACETAMOL [Concomitant]

REACTIONS (1)
  - Injection site pain [Recovered/Resolved]
